FAERS Safety Report 19599937 (Version 2)
Quarter: 2021Q4

REPORT INFORMATION
  Report Type: Spontaneous
  Country: ES (occurrence: ES)
  Receive Date: 20210722
  Receipt Date: 20211004
  Transmission Date: 20220303
  Serious: Yes (Other)
  Sender: FDA-Public Use
  Company Number: ES-ROCHE-2860410

PATIENT
  Age: 66 Year
  Sex: Female

DRUGS (6)
  1. CARBOPLATIN [Suspect]
     Active Substance: CARBOPLATIN
     Indication: Small cell lung cancer
  2. ATEZOLIZUMAB [Suspect]
     Active Substance: ATEZOLIZUMAB
     Indication: Small cell lung cancer
     Dosage: 1200 MG, AS MAINTENANCE
     Route: 042
     Dates: start: 20210730
  3. ATEZOLIZUMAB [Suspect]
     Active Substance: ATEZOLIZUMAB
     Dosage: 1200 MG, AS MAINTENANCE
     Route: 042
     Dates: start: 20210820
  4. ATEZOLIZUMAB [Suspect]
     Active Substance: ATEZOLIZUMAB
     Dosage: 1200 MG; C4 01OCT21 ATEZOLIZUMAB AS MAINTENANCE
     Route: 042
     Dates: start: 20210910
  5. ETOPOSIDE [Suspect]
     Active Substance: ETOPOSIDE
     Indication: Small cell lung cancer
  6. MEGESTROL [Concomitant]
     Active Substance: MEGESTROL
     Dosage: 160 MG, 2X/DAY (EVERY 12 HOURS)

REACTIONS (3)
  - Pancytopenia [Unknown]
  - Arterial thrombosis [Unknown]
  - Peripheral ischaemia [Unknown]
